FAERS Safety Report 9993354 (Version 1)
Quarter: 2014Q1

REPORT INFORMATION
  Report Type: Spontaneous
  Country: US (occurrence: US)
  Receive Date: 20140310
  Receipt Date: 20140310
  Transmission Date: 20141002
  Serious: No
  Sender: FDA-Public Use
  Company Number: US-009507513-1403USA001302

PATIENT
  Age: 43 Year
  Sex: Male

DRUGS (2)
  1. REBETOL [Suspect]
     Indication: HEPATITIS C
     Dosage: 600 MG AM AND PM (TWICE A DAY)
     Route: 048
     Dates: start: 20060403, end: 20070401
  2. PEGINTRON [Suspect]
     Indication: HEPATITIS C
     Dosage: 0.5 CC ONCE A WEEK
     Route: 058
     Dates: start: 20060403, end: 20070401

REACTIONS (4)
  - Dyspnoea [Unknown]
  - Anaemia [Unknown]
  - Therapeutic response decreased [Unknown]
  - Hepatitis C [Unknown]
